FAERS Safety Report 12469004 (Version 3)
Quarter: 2016Q3

REPORT INFORMATION
  Report Type: Spontaneous
  Country: IT (occurrence: IT)
  Receive Date: 20160615
  Receipt Date: 20160715
  Transmission Date: 20161109
  Serious: Yes (Hospitalization)
  Sender: FDA-Public Use
  Company Number: PHHY2016IT076034

PATIENT
  Age: 16 Year
  Sex: Female

DRUGS (1)
  1. ILARIS [Suspect]
     Active Substance: CANAKINUMAB
     Indication: JUVENILE IDIOPATHIC ARTHRITIS
     Dosage: 150 MG, EVERY 4 WEEK
     Route: 065
     Dates: start: 20160403, end: 20160403

REACTIONS (6)
  - Cough [Recovering/Resolving]
  - Neutropenia [Unknown]
  - Rash generalised [Recovering/Resolving]
  - Platelet count decreased [Unknown]
  - Pyrexia [Recovering/Resolving]
  - Leukopenia [Unknown]

NARRATIVE: CASE EVENT DATE: 20160410
